FAERS Safety Report 18456538 (Version 1)
Quarter: 2020Q4

REPORT INFORMATION
  Report Type: Spontaneous
  Country: US (occurrence: US)
  Receive Date: 20201102
  Receipt Date: 20201102
  Transmission Date: 20210114
  Serious: No
  Sender: FDA-Public Use
  Company Number: None

PATIENT
  Age: 73 Year
  Sex: Female

DRUGS (4)
  1. BENEFIBER [Concomitant]
     Active Substance: STARCH, WHEAT
  2. TARCEVA [Suspect]
     Active Substance: ERLOTINIB HYDROCHLORIDE
     Indication: LUNG NEOPLASM MALIGNANT
     Route: 048
  3. CLINDAMYCIN MC [Concomitant]
  4. CEFADROXIL. [Concomitant]
     Active Substance: CEFADROXIL

REACTIONS (2)
  - Sleep apnoea syndrome [None]
  - Sleep disorder [None]

NARRATIVE: CASE EVENT DATE: 20201030
